FAERS Safety Report 10071014 (Version 5)
Quarter: 2014Q2

REPORT INFORMATION
  Report Type: Spontaneous
  Country: US (occurrence: US)
  Receive Date: 20140410
  Receipt Date: 20140624
  Transmission Date: 20141212
  Serious: Yes (Hospitalization)
  Sender: FDA-Public Use
  Company Number: US-MYLANLABS-2014S1008016

PATIENT
  Age: 65 Year
  Sex: Female
  Weight: 68.49 kg

DRUGS (5)
  1. POLYETHYLENE GLYCOL 3350 AND ELECTROLYTES FOR ORAL SOLUTION, USP [Suspect]
     Indication: BOWEL PREPARATION
     Route: 048
     Dates: start: 20140312, end: 20140313
  2. LISINOPRIL [Concomitant]
     Indication: BLOOD PRESSURE INCREASED
  3. ATORVASTATIN [Concomitant]
     Indication: BLOOD CHOLESTEROL INCREASED
  4. LEVOTHYROXINE [Concomitant]
     Indication: HYPOTHYROIDISM
  5. ASPIRIN [Concomitant]

REACTIONS (10)
  - Coronary artery occlusion [Recovered/Resolved]
  - Cardiac disorder [Recovered/Resolved]
  - Blood electrolytes decreased [Recovered/Resolved]
  - Hypersensitivity [Recovered/Resolved]
  - Dizziness [Recovered/Resolved]
  - Headache [Recovered/Resolved]
  - Hypotension [Recovered/Resolved]
  - Vomiting [Recovered/Resolved]
  - Diarrhoea [Recovered/Resolved]
  - Nausea [Recovered/Resolved]
